FAERS Safety Report 7462441-8 (Version None)
Quarter: 2011Q2

REPORT INFORMATION
  Report Type: 
  Country: None (occurrence: None)
  Receive Date: 20110506
  Receipt Date: 20110428
  Transmission Date: 20111010
  Serious: Yes (Hospitalization)
  Sender: FDA-Public Use
  Company Number: US-BRISTOL-MYERS SQUIBB COMPANY-15645104

PATIENT
  Age: 73 Year
  Sex: Female

DRUGS (3)
  1. PLACEBO [Suspect]
     Indication: TYPE 2 DIABETES MELLITUS
     Dates: start: 20100921, end: 20100924
  2. BLINDED: SAXAGLIPTIN [Suspect]
     Indication: TYPE 2 DIABETES MELLITUS
     Dates: start: 20100921, end: 20100924
  3. METFORMIN HCL [Suspect]
     Indication: TYPE 2 DIABETES MELLITUS

REACTIONS (4)
  - CHOLECYSTITIS ACUTE [None]
  - PANCREATITIS [None]
  - RENAL FAILURE CHRONIC [None]
  - CHOLELITHIASIS [None]
